FAERS Safety Report 10153925 (Version 1)
Quarter: 2014Q2

REPORT INFORMATION
  Report Type: Spontaneous
  Country: US (occurrence: US)
  Receive Date: 20140506
  Receipt Date: 20140506
  Transmission Date: 20141212
  Serious: No
  Sender: FDA-Public Use
  Company Number: US-SHIRE-US201401310

PATIENT
  Age: 40 Year
  Sex: Male
  Weight: 58.96 kg

DRUGS (3)
  1. VYVANSE [Suspect]
     Indication: ATTENTION DEFICIT/HYPERACTIVITY DISORDER
     Dosage: 40 MG, UNKNOWN
     Route: 048
     Dates: start: 2013, end: 201311
  2. VYVANSE [Suspect]
     Dosage: 50 UNK, UNK
     Route: 048
     Dates: start: 20131113
  3. VYVANSE [Suspect]
     Dosage: 70 UNK, UNK
     Route: 048
     Dates: start: 201401

REACTIONS (1)
  - Drug effect decreased [Recovered/Resolved]
